FAERS Safety Report 4543099-4 (Version None)
Quarter: 2004Q4

REPORT INFORMATION
  Report Type: 
  Country: None (occurrence: None)
  Receive Date: 20041229
  Receipt Date: 20041220
  Transmission Date: 20050328
  Serious: No
  Sender: FDA-Public Use
  Company Number: A04200400301

PATIENT
  Sex: Female

DRUGS (2)
  1. HYDROXYCHLOROQUINE SULFATE [Suspect]
     Indication: LUPUS VASCULITIS
     Dosage: 100 MG OD ORAL A FEW DAYS
     Route: 048
     Dates: start: 20040326
  2. HYDROXYCHLOROQUINE SULFATE [Suspect]
     Indication: SYSTEMIC LUPUS ERYTHEMATOSUS
     Dosage: 100 MG OD ORAL A FEW DAYS
     Route: 048
     Dates: start: 20040326

REACTIONS (1)
  - RESPIRATORY FAILURE [None]
